FAERS Safety Report 6199921-1 (Version None)
Quarter: 2009Q2

REPORT INFORMATION
  Report Type: 
  Country: None (occurrence: None)
  Receive Date: 20090520
  Receipt Date: 20090520
  Transmission Date: 20091009
  Serious: Yes (Other)
  Sender: FDA-Public Use
  Company Number: None

PATIENT
  Sex: Female
  Weight: 47.1741 kg

DRUGS (1)
  1. CENTRUM MULTIVITAMIN/MULTI  100 TABLETS WYETH [Suspect]
     Dosage: 1 TABLET 1 EVERYDAY PO
     Route: 048
     Dates: start: 20090511, end: 20090519

REACTIONS (1)
  - GASTROINTESTINAL PAIN [None]
